FAERS Safety Report 22239537 (Version 2)
Quarter: 2023Q4

REPORT INFORMATION
  Report Type: Spontaneous
  Country: CA (occurrence: CA)
  Receive Date: 20230421
  Receipt Date: 20231225
  Transmission Date: 20240109
  Serious: Yes (Other)
  Sender: FDA-Public Use
  Company Number: CA-PFIZER INC-2020412980

PATIENT
  Age: 65 Year
  Sex: Male
  Weight: 125 kg

DRUGS (30)
  1. RUXIENCE [Suspect]
     Active Substance: RITUXIMAB-PVVR
     Indication: Granulomatosis with polyangiitis
     Dosage: 866.25 MG, WEEKLY FOR 4 WEEKS
     Route: 042
     Dates: start: 20201022
  2. RUXIENCE [Suspect]
     Active Substance: RITUXIMAB-PVVR
     Dosage: 866.25 MG, WEEKLY
     Route: 042
     Dates: start: 20201022, end: 20201022
  3. RUXIENCE [Suspect]
     Active Substance: RITUXIMAB-PVVR
     Dosage: 866.25 MG, WEEKLY
     Route: 042
     Dates: start: 20201022
  4. RUXIENCE [Suspect]
     Active Substance: RITUXIMAB-PVVR
     Dosage: 866.25 MG, WEEKLY, FOR 4 WEEKS
     Route: 042
     Dates: start: 20201022, end: 20201112
  5. RUXIENCE [Suspect]
     Active Substance: RITUXIMAB-PVVR
     Dosage: 866.25 MG, WEEKLY
     Route: 042
     Dates: start: 20201105
  6. RUXIENCE [Suspect]
     Active Substance: RITUXIMAB-PVVR
     Dosage: 866.25 MG, WEEKLY
     Route: 042
     Dates: start: 20201105
  7. RUXIENCE [Suspect]
     Active Substance: RITUXIMAB-PVVR
     Dosage: 866.25 MG, WEEKLY
     Route: 042
     Dates: start: 20201105
  8. RUXIENCE [Suspect]
     Active Substance: RITUXIMAB-PVVR
     Dosage: 866.25 MG, WEEKLY
     Route: 042
     Dates: start: 20201112
  9. RUXIENCE [Suspect]
     Active Substance: RITUXIMAB-PVVR
     Dosage: 866.25 MG, WEEKLY
     Route: 042
     Dates: start: 20201112
  10. RUXIENCE [Suspect]
     Active Substance: RITUXIMAB-PVVR
     Dosage: 866.25 MG, WEEKLY
     Route: 042
     Dates: start: 20201112
  11. RUXIENCE [Suspect]
     Active Substance: RITUXIMAB-PVVR
     Dosage: 878 MG, WEEKLY FOR 4 WEEKS
     Route: 042
     Dates: start: 20220310
  12. RUXIENCE [Suspect]
     Active Substance: RITUXIMAB-PVVR
     Dosage: 878 MG, WEEKLY, FOR 4 WEEKS
     Route: 042
     Dates: start: 20220310, end: 20220330
  13. RUXIENCE [Suspect]
     Active Substance: RITUXIMAB-PVVR
     Dosage: 878 MG, WEEKLY FOR 4 WEEKS
     Route: 042
     Dates: start: 20220330
  14. RUXIENCE [Suspect]
     Active Substance: RITUXIMAB-PVVR
     Dosage: 878 MG, WEEKLY FOR 4 WEEKS
     Route: 042
     Dates: start: 20220330
  15. RUXIENCE [Suspect]
     Active Substance: RITUXIMAB-PVVR
     Dosage: 878 MG, WEEKLY FOR 4 WEEKS
     Route: 042
     Dates: start: 20220330, end: 20220330
  16. RUXIENCE [Suspect]
     Active Substance: RITUXIMAB-PVVR
     Dosage: 500 MG ONE DOSE (EVERY 6 MONTHS)(RETREATMENT)
     Route: 042
     Dates: start: 20221124, end: 20221124
  17. RUXIENCE [Suspect]
     Active Substance: RITUXIMAB-PVVR
     Dosage: 500 MG, ONE DOSE
     Route: 042
     Dates: start: 20230525, end: 20230525
  18. RUXIENCE [Suspect]
     Active Substance: RITUXIMAB-PVVR
     Dosage: 500 MG, ONE-TIME DOSE (28 WEEKS AND 6 DAYS)
     Route: 042
     Dates: start: 20231213
  19. ACETAMINOPHEN [Concomitant]
     Active Substance: ACETAMINOPHEN
     Indication: Premedication
     Dosage: 650 MG
     Route: 048
  20. ATENOLOL [Concomitant]
     Active Substance: ATENOLOL
     Indication: Hypertension
     Dosage: 100 MG, DAILY
     Route: 065
  21. BENADRYL [Concomitant]
     Active Substance: DIPHENHYDRAMINE HYDROCHLORIDE
     Indication: Premedication
     Dosage: 50 MG
     Route: 048
  22. BENADRYL [Concomitant]
     Active Substance: DIPHENHYDRAMINE HYDROCHLORIDE
     Dosage: 50 MG
     Route: 048
     Dates: start: 20201112, end: 20201112
  23. NIFEDIPINE [Concomitant]
     Active Substance: NIFEDIPINE
     Indication: Hypertension
     Dosage: 60 MG, DAILY
     Route: 065
  24. PANTOPRAZOLE SODIUM [Concomitant]
     Active Substance: PANTOPRAZOLE SODIUM
     Dosage: UNK, 1X/DAY
     Route: 065
  25. PREDNISONE [Concomitant]
     Active Substance: PREDNISONE
     Dosage: 50 MG, DAILY
     Route: 065
     Dates: start: 202007
  26. RISEDRONATE SODIUM [Concomitant]
     Active Substance: RISEDRONATE SODIUM
     Dosage: 35 MG 1 TAB EVERY 7 DAYS
     Route: 065
  27. ROSUVASTATIN [Concomitant]
     Active Substance: ROSUVASTATIN
     Dosage: 20 MG, DAILY
     Route: 065
  28. TYLENOL [Concomitant]
     Active Substance: ACETAMINOPHEN
     Indication: Premedication
     Dosage: 650 MG
     Route: 048
     Dates: start: 20201022, end: 20201022
  29. TYLENOL [Concomitant]
     Active Substance: ACETAMINOPHEN
     Dosage: 650 MG
     Route: 048
     Dates: start: 20201112, end: 20201112
  30. TYLENOL [Concomitant]
     Active Substance: ACETAMINOPHEN
     Dosage: 650 MG
     Route: 048

REACTIONS (10)
  - Hip arthroplasty [Unknown]
  - Ear pruritus [Unknown]
  - Throat irritation [Unknown]
  - Weight increased [Not Recovered/Not Resolved]
  - Off label use [Unknown]
  - Off label use [Unknown]
  - Off label use [Unknown]
  - Product use issue [Unknown]
  - Off label use [Unknown]
  - Intentional product use issue [Unknown]

NARRATIVE: CASE EVENT DATE: 20201022
